FAERS Safety Report 9890720 (Version 1)
Quarter: 2014Q1

REPORT INFORMATION
  Report Type: Report from Study
  Country: LB (occurrence: LB)
  Receive Date: 20140212
  Receipt Date: 20140212
  Transmission Date: 20141002
  Serious: Yes (Hospitalization)
  Sender: FDA-Public Use
  Company Number: LB-SA-2014SA015218

PATIENT
  Age: 62 Year
  Sex: Male

DRUGS (8)
  1. LANTUS SOLOSTAR [Suspect]
     Indication: DIABETES MELLITUS
     Dosage: DOSE: 16 UNITS WITH TITRATION DOSE:16 UNIT(S)
     Route: 058
     Dates: start: 2013
  2. NOVORAPID [Concomitant]
     Indication: DIABETES MELLITUS
     Route: 058
  3. GALVUSMET [Concomitant]
     Indication: DIABETES MELLITUS
     Route: 048
  4. DIAMICRON [Concomitant]
     Indication: DIABETES MELLITUS
     Route: 048
  5. FLUDEX [Concomitant]
     Route: 048
  6. TRITACE [Concomitant]
     Route: 048
  7. SERUMLIPIDREDUCING AGENTS [Concomitant]
     Route: 048
  8. ASPICOT [Concomitant]
     Route: 048

REACTIONS (1)
  - Bladder neoplasm surgery [Recovered/Resolved]
